FAERS Safety Report 4329766-6 (Version None)
Quarter: 2004Q2

REPORT INFORMATION
  Report Type: 
  Country: None (occurrence: None)
  Receive Date: 20040401
  Receipt Date: 20040317
  Transmission Date: 20050107
  Serious: Yes (Life-Threatening, Hospitalization)
  Sender: FDA-Public Use
  Company Number: DE-GLAXOSMITHKLINE-D0043433A

PATIENT
  Age: 71 Year
  Sex: Male

DRUGS (8)
  1. AVANDIA [Suspect]
     Indication: DIABETES MELLITUS NON-INSULIN-DEPENDENT
     Dosage: 4MG PER DAY
     Route: 048
     Dates: start: 20030805, end: 20040315
  2. SIMVASTATIN [Concomitant]
     Dosage: 15MG PER DAY
     Route: 048
  3. ASPIRIN [Concomitant]
     Dosage: 100MG PER DAY
     Route: 048
  4. DELIX [Concomitant]
     Dosage: 5MG PER DAY
     Route: 048
  5. DILATREND [Concomitant]
     Dosage: 25MG PER DAY
     Route: 048
  6. SEREVENT [Concomitant]
     Dosage: 2PUFF TWICE PER DAY
     Route: 055
  7. PROSTAGUTT [Concomitant]
     Dosage: 40DROP THREE TIMES PER DAY
     Route: 065
  8. EZETROL [Concomitant]
     Dosage: 10MG PER DAY
     Route: 048
     Dates: start: 20040115

REACTIONS (1)
  - RENAL CELL CARCINOMA STAGE UNSPECIFIED [None]
